FAERS Safety Report 8584975-5 (Version None)
Quarter: 2012Q3

REPORT INFORMATION
  Report Type: 
  Country: None (occurrence: None)
  Receive Date: 20120802
  Receipt Date: 20120802
  Transmission Date: 20120928
  Serious: Yes (Other)
  Sender: FDA-Public Use
  Company Number: None

PATIENT
  Sex: Female
  Weight: 68.0396 kg

DRUGS (1)
  1. COPAXONE [Suspect]
     Dosage: 20MG QD SQ
     Route: 058
     Dates: start: 20080928

REACTIONS (1)
  - LOSS OF CONSCIOUSNESS [None]
